FAERS Safety Report 13167093 (Version 1)
Quarter: 2017Q1

REPORT INFORMATION
  Report Type: Spontaneous
  Country: AU (occurrence: AU)
  Receive Date: 20170131
  Receipt Date: 20170131
  Transmission Date: 20170428
  Serious: Yes (Other)
  Sender: FDA-Public Use
  Company Number: AU-AMGEN-AUSSP2017012768

PATIENT
  Age: 60 Year
  Sex: Female

DRUGS (3)
  1. PARIET [Concomitant]
     Active Substance: RABEPRAZOLE SODIUM
     Indication: GASTRITIS
     Route: 065
  2. CALCIUM [Concomitant]
     Active Substance: CALCIUM
  3. PROLIA [Suspect]
     Active Substance: DENOSUMAB
     Indication: OSTEOPOROSIS
     Dosage: 60 MG, Q6MO
     Route: 058
     Dates: start: 201505

REACTIONS (9)
  - Feeling abnormal [Recovered/Resolved]
  - Asthenia [Unknown]
  - Hysterectomy [Unknown]
  - Malaise [Recovered/Resolved]
  - Fracture [Unknown]
  - Nausea [Recovered/Resolved]
  - Influenza [Unknown]
  - Lethargy [Unknown]
  - Cough [Recovered/Resolved]

NARRATIVE: CASE EVENT DATE: 2015
